FAERS Safety Report 8487133-8 (Version None)
Quarter: 2012Q3

REPORT INFORMATION
  Report Type: 
  Country: None (occurrence: None)
  Receive Date: 20120704
  Receipt Date: 20120702
  Transmission Date: 20120928
  Serious: Yes (Other)
  Sender: FDA-Public Use
  Company Number: PHEH2012US011359

PATIENT
  Sex: Female
  Weight: 58.05 kg

DRUGS (6)
  1. PRILOSEC [Concomitant]
     Dosage: 20 MG, UNK
  2. ASPIRIN [Concomitant]
     Dosage: UNK UKN, UNK
  3. PROCARDIA [Concomitant]
     Dosage: UNK UKN, UNK
  4. DIOVAN HCT [Suspect]
     Indication: HYPERTENSION
     Dosage: 1 DF, 320MG VALSARTAN AND 25MG HYDROCHLOROTHIAZIDE
     Route: 048
     Dates: start: 20111218, end: 20120605
  5. SYNTHROID [Concomitant]
     Dosage: 50 UG, UNK
  6. ACETAMINOPHEN [Concomitant]
     Dosage: UNK UKN, UNK

REACTIONS (3)
  - DRUG INEFFECTIVE [None]
  - BLOOD PRESSURE FLUCTUATION [None]
  - MEDICATION RESIDUE [None]
